FAERS Safety Report 9160171 (Version 1)
Quarter: 2013Q1

REPORT INFORMATION
  Report Type: Spontaneous
  Country: GR (occurrence: None)
  Receive Date: 20130219
  Receipt Date: 20130219
  Transmission Date: 20140127
  Serious: Yes (Hospitalization)
  Sender: FDA-Public Use
  Company Number: B0868138A

PATIENT
  Age: 41 Year
  Sex: Male

DRUGS (1)
  1. CEFUROXIME SODIUM (FORMULATION UNKNOWN) (GENERIC) (CEFUROXIME SODIUM) [Suspect]
     Indication: UPPER RESPIRATORY TRACT INFECTION

REACTIONS (6)
  - Anaphylactic shock [None]
  - Neutrophilia [None]
  - Eosinophilia [None]
  - Hyperglycaemia [None]
  - Kounis syndrome [None]
  - Arteriospasm coronary [None]
